FAERS Safety Report 5798860-5 (Version None)
Quarter: 2008Q2

REPORT INFORMATION
  Report Type: 
  Country: None (occurrence: None)
  Receive Date: 20080630
  Receipt Date: 20080508
  Transmission Date: 20081010
  Serious: Yes (Hospitalization, Other)
  Sender: FDA-Public Use
  Company Number: 2008JP001131

PATIENT
  Age: 76 Year
  Sex: Female
  Weight: 40 kg

DRUGS (7)
  1. PROGRAF [Suspect]
     Indication: RHEUMATOID ARTHRITIS
     Dosage: 1.5 MG, UID/QD, ORAL; 1.5 MG, UID/QD, ORAL
     Route: 048
     Dates: start: 19940601
  2. PROGRAF [Suspect]
     Indication: RHEUMATOID ARTHRITIS
     Dosage: 1.5 MG, UID/QD, ORAL; 1.5 MG, UID/QD, ORAL
     Route: 048
     Dates: start: 20080207
  3. PREDNISOLONE [Concomitant]
  4. MUCOSTA (REBAMIPIDE) PER ORAL NOS [Concomitant]
  5. METHYCOBAL (MECOBALAMIN) PER ORAL NOS [Concomitant]
  6. EVISTA (RALOXIFENE HYDROCHLORIDE) PER ORAL NOS [Concomitant]
  7. FERROMIA (FERROUS CITRATE) PER ORAL NOS [Concomitant]

REACTIONS (1)
  - NON-HODGKIN'S LYMPHOMA [None]
